FAERS Safety Report 7549554-7 (Version None)
Quarter: 2011Q2

REPORT INFORMATION
  Report Type: 
  Country: None (occurrence: None)
  Receive Date: 20110615
  Receipt Date: 20110526
  Transmission Date: 20111010
  Serious: Yes (Other)
  Sender: FDA-Public Use
  Company Number: A0865954A

PATIENT
  Age: 62 Year
  Sex: Female
  Weight: 96.8 kg

DRUGS (6)
  1. LIPITOR [Concomitant]
  2. DETROL [Concomitant]
  3. TOPROL-XL [Concomitant]
  4. ZETIA [Concomitant]
  5. AVANDIA [Suspect]
     Dosage: 4MG PER DAY
     Dates: start: 20001010
  6. TARKA [Concomitant]

REACTIONS (3)
  - ANAEMIA [None]
  - RENAL IMPAIRMENT [None]
  - CARDIAC FAILURE CONGESTIVE [None]
